FAERS Safety Report 18535609 (Version 2)
Quarter: 2020Q4

REPORT INFORMATION
  Report Type: Spontaneous
  Country: ES (occurrence: ES)
  Receive Date: 20201123
  Receipt Date: 20201130
  Transmission Date: 20210114
  Serious: Yes (Disabling)
  Sender: FDA-Public Use
  Company Number: ES-AMERICAN REGENT INC-2020002484

PATIENT
  Age: 47 Year
  Sex: Female

DRUGS (2)
  1. FERINJECT [Suspect]
     Active Substance: FERRIC CARBOXYMALTOSE
     Indication: IRON DEFICIENCY ANAEMIA
     Dosage: 1 GRAM WEEKLY (2 IV DOSES OF 1 GRAM  ADMINISTERED AS 2 WEEKLY DOSES)
     Dates: start: 20201007, end: 20201007
  2. FERINJECT [Suspect]
     Active Substance: FERRIC CARBOXYMALTOSE
     Dosage: 1 GRAM WEEKLY (2 IV DOSES OF 1 GRAM  ADMINISTERED AS 2 WEEKLY DOSES)

REACTIONS (2)
  - Vomiting [Recovered/Resolved]
  - Influenza like illness [Recovered/Resolved]

NARRATIVE: CASE EVENT DATE: 20201007
